FAERS Safety Report 4791988-8 (Version None)
Quarter: 2005Q4

REPORT INFORMATION
  Report Type: 
  Country: None (occurrence: None)
  Receive Date: 20051006
  Receipt Date: 20050919
  Transmission Date: 20060501
  Serious: Yes (Death)
  Sender: FDA-Public Use
  Company Number: PAR_0255_2005

PATIENT
  Age: 17 Year

DRUGS (2)
  1. DIAZEPAM [Suspect]
     Dosage: DF UNK PO
     Route: 048
  2. PSEUDOEPHEDRINE HCL [Suspect]
     Dosage: DF UNK PO
     Route: 048

REACTIONS (4)
  - CARDIAC ARREST [None]
  - COMPLETED SUICIDE [None]
  - MULTIPLE DRUG OVERDOSE [None]
  - RESPIRATORY ARREST [None]
